FAERS Safety Report 12675778 (Version 1)
Quarter: 2016Q3

REPORT INFORMATION
  Report Type: Spontaneous
  Country: US (occurrence: None)
  Receive Date: 20160822
  Receipt Date: 20160822
  Transmission Date: 20161109
  Serious: Yes (Hospitalization, Other)
  Sender: FDA-Public Use
  Company Number: None

PATIENT
  Age: 19 Year
  Sex: Female
  Weight: 88 kg

DRUGS (7)
  1. INFLIXIMAB [Suspect]
     Active Substance: INFLIXIMAB
     Indication: COLITIS ULCERATIVE
     Dosage: 10 MG/KG Q4WK INTRAVENOUS (NOT OTHERWISE SPECIFIED)
     Route: 042
     Dates: start: 20140305
  2. MULTIVITAMIN [Concomitant]
     Active Substance: VITAMINS
  3. CHOLECALCIFEROL [Concomitant]
     Active Substance: CHOLECALCIFEROL
  4. APRISO [Concomitant]
     Active Substance: MESALAMINE
  5. IRON SLOE FE [Concomitant]
  6. VITAMIN D3 [Concomitant]
     Active Substance: CHOLECALCIFEROL
  7. AZATHIOPRINE, 50MG [Concomitant]
     Indication: COLITIS ULCERATIVE
     Route: 048

REACTIONS (5)
  - Migraine [None]
  - Hemiplegia [None]
  - Headache [None]
  - Ependymoma [None]
  - Vertigo [None]

NARRATIVE: CASE EVENT DATE: 20150731
